FAERS Safety Report 8332153-7 (Version None)
Quarter: 2012Q2

REPORT INFORMATION
  Report Type: 
  Country: None (occurrence: None)
  Receive Date: 20120503
  Receipt Date: 20120427
  Transmission Date: 20120825
  Serious: Yes (Hospitalization, Other)
  Sender: FDA-Public Use
  Company Number: US-AMGEN-USASP2012027281

PATIENT
  Age: 62 Year
  Sex: Female

DRUGS (8)
  1. PROLIA [Suspect]
     Indication: OSTEOPENIA
     Dosage: 60 MG, Q6MO
     Dates: start: 20110801
  2. SYNTHROID [Concomitant]
     Dosage: UNK
  3. LIPITOR [Concomitant]
  4. XANAX [Concomitant]
  5. CALCIUM WITH VITAMIN D             /00944201/ [Concomitant]
  6. OMEPRAZOLE [Concomitant]
  7. DILAUDID-HP [Concomitant]
     Dosage: UNK
     Dates: end: 20111201
  8. CELEXA [Concomitant]

REACTIONS (10)
  - BLOOD POTASSIUM ABNORMAL [None]
  - DIARRHOEA [None]
  - PAIN IN EXTREMITY [None]
  - MALAISE [None]
  - HEADACHE [None]
  - CONSTIPATION [None]
  - BACK PAIN [None]
  - VOMITING [None]
  - PANCREATITIS ACUTE [None]
  - CYSTITIS [None]
